FAERS Safety Report 9667805 (Version 1)
Quarter: 2013Q4

REPORT INFORMATION
  Report Type: Spontaneous
  Country: US (occurrence: US)
  Receive Date: 20131104
  Receipt Date: 20131104
  Transmission Date: 20140711
  Serious: Yes (Other)
  Sender: FDA-Public Use
  Company Number: US-PFIZER INC-2013311825

PATIENT
  Age: 54 Year
  Sex: Female

DRUGS (1)
  1. XANAX [Suspect]
     Indication: ANXIETY
     Dosage: 2 MG, 4X/DAY
     Route: 048

REACTIONS (2)
  - Fall [Unknown]
  - Concussion [Unknown]
